FAERS Safety Report 15274082 (Version 1)
Quarter: 2018Q3

REPORT INFORMATION
  Report Type: Report from Study
  Country: None (occurrence: US)
  Receive Date: 20180814
  Receipt Date: 20180814
  Transmission Date: 20181010
  Serious: Yes (Hospitalization, Other)
  Sender: FDA-Public Use
  Company Number: US-ABBVIE-18K-163-2449273-00

PATIENT
  Sex: Female

DRUGS (1)
  1. HUMIRA [Suspect]
     Active Substance: ADALIMUMAB
     Indication: PRODUCT USED FOR UNKNOWN INDICATION
     Route: 058
     Dates: start: 201610, end: 201611

REACTIONS (14)
  - Frequent bowel movements [Unknown]
  - Gastrointestinal erosion [Unknown]
  - Decreased appetite [Unknown]
  - Drug ineffective [Unknown]
  - Abdominal pain [Unknown]
  - Nausea [Unknown]
  - Haematochezia [Unknown]
  - Diarrhoea [Unknown]
  - Rectal haemorrhage [Unknown]
  - Gastrointestinal mucosa hyperaemia [Unknown]
  - Vomiting [Unknown]
  - Surgery [Unknown]
  - Colitis ulcerative [Unknown]
  - Gastrointestinal mucosal disorder [Unknown]

NARRATIVE: CASE EVENT DATE: 201705
